FAERS Safety Report 4455982-9 (Version None)
Quarter: 2004Q3

REPORT INFORMATION
  Report Type: 
  Country: None (occurrence: None)
  Receive Date: 20040922
  Receipt Date: 20040910
  Transmission Date: 20050211
  Serious: Yes (Life-Threatening, Hospitalization)
  Sender: FDA-Public Use
  Company Number: 379300

PATIENT
  Age: 57 Year
  Sex: Female

DRUGS (3)
  1. CARVEDILOL [Suspect]
     Dosage: 10MG PER DAY
     Route: 048
     Dates: start: 20040720, end: 20040818
  2. CRAVIT [Suspect]
     Dosage: 200MG TWICE PER DAY
     Route: 048
     Dates: start: 20040810, end: 20040815
  3. ALLOPURINOL [Suspect]
     Route: 048

REACTIONS (6)
  - BLISTER [None]
  - ILL-DEFINED DISORDER [None]
  - PYREXIA [None]
  - RASH [None]
  - STEVENS-JOHNSON SYNDROME [None]
  - TOXIC EPIDERMAL NECROLYSIS [None]
